FAERS Safety Report 6076691-9 (Version None)
Quarter: 2009Q1

REPORT INFORMATION
  Report Type: 
  Country: None (occurrence: None)
  Receive Date: 20090213
  Receipt Date: 20090204
  Transmission Date: 20090719
  Serious: Yes (Other)
  Sender: FDA-Public Use
  Company Number: PHEH2007US08935

PATIENT
  Sex: Female

DRUGS (5)
  1. AREDIA [Suspect]
     Indication: MULTIPLE MYELOMA
  2. MEVACOR [Concomitant]
  3. DARVOCET-N 100 [Concomitant]
  4. TYLENOL [Concomitant]
  5. NEURONTIN [Concomitant]

REACTIONS (16)
  - ANHEDONIA [None]
  - ANXIETY [None]
  - BONE DISORDER [None]
  - DEFORMITY [None]
  - DISCOMFORT [None]
  - EMOTIONAL DISTRESS [None]
  - IMPAIRED HEALING [None]
  - INFECTION [None]
  - JAW DISORDER [None]
  - MENTAL DISORDER [None]
  - OSTEONECROSIS [None]
  - PAIN [None]
  - STEM CELL TRANSPLANT [None]
  - SWELLING [None]
  - TOOTH EXTRACTION [None]
  - TOOTH LOSS [None]
